FAERS Safety Report 6415238-1 (Version None)
Quarter: 2009Q4

REPORT INFORMATION
  Report Type: 
  Country: None (occurrence: None)
  Receive Date: 20091027
  Receipt Date: 20091016
  Transmission Date: 20100525
  Serious: Yes (Other)
  Sender: FDA-Public Use
  Company Number: CA-RANBAXY-2009RR-28758

PATIENT
  Sex: Female

DRUGS (2)
  1. FENOFIBRATE [Suspect]
     Dosage: 145 MG, UNK
     Dates: start: 20070101
  2. ATORVASTATIN [Concomitant]
     Dosage: UNK
     Dates: start: 20070101

REACTIONS (1)
  - HIGH DENSITY LIPOPROTEIN DECREASED [None]
